FAERS Safety Report 14314658 (Version 1)
Quarter: 2017Q4

REPORT INFORMATION
  Report Type: Spontaneous
  Country: GB (occurrence: GB)
  Receive Date: 20171221
  Receipt Date: 20171221
  Transmission Date: 20180321
  Serious: Yes (Death, Hospitalization, Other)
  Sender: FDA-Public Use
  Company Number: PHHY2017GB185080

PATIENT
  Age: 34 Year
  Sex: Female

DRUGS (2)
  1. TRAMETINIB [Suspect]
     Active Substance: TRAMETINIB
     Indication: METASTATIC MALIGNANT MELANOMA
     Dosage: 2 MG, QD
     Route: 065
  2. DABRAFENIB [Suspect]
     Active Substance: DABRAFENIB
     Indication: METASTATIC MALIGNANT MELANOMA
     Dosage: 150 MG, BID
     Route: 065

REACTIONS (6)
  - Dermatitis [Unknown]
  - Lower respiratory tract infection [Unknown]
  - Pleural effusion [Unknown]
  - General physical health deterioration [Fatal]
  - Mental disorder [Unknown]
  - Dyspnoea [Unknown]

NARRATIVE: CASE EVENT DATE: 201709
